FAERS Safety Report 5489298-9 (Version None)
Quarter: 2007Q4

REPORT INFORMATION
  Report Type: 
  Country: None (occurrence: None)
  Receive Date: 20071018
  Receipt Date: 20071004
  Transmission Date: 20080405
  Serious: Yes (Hospitalization)
  Sender: FDA-Public Use
  Company Number: GB-BRISTOL-MYERS SQUIBB COMPANY-13941497

PATIENT
  Age: 54 Year
  Sex: Female
  Weight: 60 kg

DRUGS (8)
  1. PACLITAXEL [Suspect]
     Indication: BREAST CANCER
     Dates: start: 20070926, end: 20070926
  2. CYCLOPHOSPHAMIDE [Suspect]
     Indication: BREAST CANCER
     Dates: start: 20070905, end: 20070905
  3. GEMCITABINE HCL [Suspect]
     Indication: BREAST CANCER
     Dates: start: 20070926, end: 20070926
  4. EPIRUBICIN [Suspect]
     Indication: BREAST CANCER
     Dates: start: 20070905, end: 20070905
  5. PARACETAMOL [Concomitant]
     Indication: ANALGESIA
     Route: 048
     Dates: start: 20070930
  6. ATENOLOL [Concomitant]
     Indication: BLOOD PRESSURE INCREASED
     Route: 048
  7. ZOPICLONE [Concomitant]
     Indication: SEDATION
     Route: 048
     Dates: start: 20071002
  8. SODIUM CHLORIDE [Concomitant]
     Indication: FLUID REPLACEMENT
     Route: 042
     Dates: start: 20071002

REACTIONS (5)
  - ABDOMINAL PAIN [None]
  - ARTHRALGIA [None]
  - DIARRHOEA [None]
  - HOT FLUSH [None]
  - RECTAL HAEMORRHAGE [None]
